FAERS Safety Report 8441127-7 (Version None)
Quarter: 2012Q2

REPORT INFORMATION
  Report Type: 
  Country: None (occurrence: None)
  Receive Date: 20120615
  Receipt Date: 20120605
  Transmission Date: 20120825
  Serious: Yes (Hospitalization)
  Sender: FDA-Public Use
  Company Number: NL-ELI_LILLY_AND_COMPANY-NL201205007971

PATIENT
  Sex: Female

DRUGS (4)
  1. AMLODIPINE MALEATE [Concomitant]
     Dosage: 10 MG, QD
  2. CRESTOR [Concomitant]
     Indication: HYPERLIPIDAEMIA
     Dosage: 10 MG, QD
  3. NEXIUM [Concomitant]
     Dosage: 40 MG, QD
  4. CYMBALTA [Suspect]
     Indication: BACK PAIN
     Dosage: 60 MG, QD
     Dates: start: 20110825, end: 20110911

REACTIONS (17)
  - CRYING [None]
  - DISORIENTATION [None]
  - OROPHARYNGEAL PAIN [None]
  - WEIGHT DECREASED [None]
  - ANXIETY [None]
  - DEHYDRATION [None]
  - MENTAL DISORDER [None]
  - DELIRIUM [None]
  - DYSPHAGIA [None]
  - DECREASED APPETITE [None]
  - CEREBRAL INFARCTION [None]
  - NAUSEA [None]
  - FATIGUE [None]
  - DRY THROAT [None]
  - HICCUPS [None]
  - AMNESIA [None]
  - DYSGEUSIA [None]
